FAERS Safety Report 16740631 (Version 7)
Quarter: 2019Q4

REPORT INFORMATION
  Report Type: Spontaneous
  Country: PL (occurrence: PL)
  Receive Date: 20190826
  Receipt Date: 20191007
  Transmission Date: 20200122
  Serious: No
  Sender: FDA-Public Use
  Company Number: PL-OTSUKA-2019_029994

PATIENT
  Age: 46 Year
  Sex: Female

DRUGS (12)
  1. ARIPIPRAZOLE. [Suspect]
     Active Substance: ARIPIPRAZOLE
     Indication: BIPOLAR DISORDER
     Dosage: 7.5 MG, QD
     Route: 048
  2. CIPROFLOXACIN. [Interacting]
     Active Substance: CIPROFLOXACIN
     Indication: LEUKOCYTOSIS
  3. PANTOPRAZOLE [Interacting]
     Active Substance: PANTOPRAZOLE
     Indication: GASTROOESOPHAGEAL REFLUX DISEASE
     Dosage: 40 MG, QD
     Route: 048
  4. CEFUROXIME AXETIL. [Interacting]
     Active Substance: CEFUROXIME AXETIL
     Indication: URINARY TRACT INFECTION
  5. ITOPRIDE [Interacting]
     Active Substance: ITOPRIDE
     Indication: GASTROOESOPHAGEAL REFLUX DISEASE
     Dosage: 50 MG,TID
     Route: 048
  6. OLANZAPINE. [Interacting]
     Active Substance: OLANZAPINE
     Indication: BIPOLAR DISORDER
     Dosage: 10 MG, QD
     Route: 048
  7. CEFUROXIME AXETIL. [Interacting]
     Active Substance: CEFUROXIME AXETIL
     Indication: BACTERIAL INFECTION
     Dosage: UNK
     Route: 065
  8. TRIMETHOPRIM SULFAMETHOXAZOLE [Interacting]
     Active Substance: SULFAMETHOXAZOLE\TRIMETHOPRIM
     Indication: BACTERIAL INFECTION
     Dosage: UNK
     Route: 065
  9. AMOXICILLIN CLAVULANIC ACID [Interacting]
     Active Substance: AMOXICILLIN\CLAVULANIC ACID
     Indication: URINARY TRACT INFECTION
     Dosage: UNK
     Route: 065
  10. CIPROFLOXACIN. [Interacting]
     Active Substance: CIPROFLOXACIN
     Indication: URINARY TRACT INFECTION
     Dosage: UNK
     Route: 065
  11. NIFUROKSAZYD [Interacting]
     Active Substance: NIFUROXAZIDE
     Indication: DIARRHOEA
     Dosage: UNK
     Route: 065
  12. LEVOFLOXACIN. [Interacting]
     Active Substance: LEVOFLOXACIN
     Indication: BACTERIAL INFECTION
     Dosage: UNK
     Route: 065

REACTIONS (1)
  - No adverse event [Unknown]
